FAERS Safety Report 9024287 (Version 1)
Quarter: 2013Q1

REPORT INFORMATION
  Report Type: Spontaneous
  Country: AR (occurrence: AR)
  Receive Date: 20130121
  Receipt Date: 20130121
  Transmission Date: 20140127
  Serious: Yes (Hospitalization, Other)
  Sender: FDA-Public Use
  Company Number: PHHY2013AR005180

PATIENT
  Sex: Male

DRUGS (2)
  1. ONBREZ [Suspect]
     Indication: EMPHYSEMA
     Dosage: 150 UG, QD
  2. ONBREZ [Suspect]
     Dosage: 150 UG, UNK

REACTIONS (3)
  - Cerebrovascular accident [Recovering/Resolving]
  - Dysphemia [Recovering/Resolving]
  - Off label use [Unknown]
